FAERS Safety Report 24327887 (Version 2)
Quarter: 2024Q4

REPORT INFORMATION
  Report Type: Spontaneous
  Country: US (occurrence: US)
  Receive Date: 20240917
  Receipt Date: 20241011
  Transmission Date: 20250115
  Serious: Yes (Other)
  Sender: KEDRION
  Company Number: US-KEDRION-009615

PATIENT
  Age: 59 Year
  Sex: Male
  Weight: 82.1 kg

DRUGS (13)
  1. GAMMAPLEX [Suspect]
     Active Substance: HUMAN IMMUNOGLOBULIN G
     Indication: Hypogammaglobulinaemia
     Dosage: TIME INTERVAL: AS NECESSARY: 2 VIALS
     Route: 065
     Dates: start: 20240508, end: 20240508
  2. GAMMAPLEX [Suspect]
     Active Substance: HUMAN IMMUNOGLOBULIN G
     Indication: Hypogammaglobulinaemia
     Dosage: TIME INTERVAL: AS NECESSARY: 4 VIALS
     Route: 065
     Dates: start: 20240131, end: 20240131
  3. GAMMAPLEX [Suspect]
     Active Substance: HUMAN IMMUNOGLOBULIN G
     Indication: Hypogammaglobulinaemia
     Dosage: TIME INTERVAL: AS NECESSARY: 4 VIALS
     Route: 065
     Dates: start: 20240412, end: 20240412
  4. GAMMAPLEX [Suspect]
     Active Substance: HUMAN IMMUNOGLOBULIN G
     Indication: Hypogammaglobulinaemia
     Dosage: TIME INTERVAL: AS NECESSARY: 2 VIALS
     Route: 065
     Dates: start: 20240508, end: 20240508
  5. GAMMAPLEX [Suspect]
     Active Substance: HUMAN IMMUNOGLOBULIN G
     Indication: Hypogammaglobulinaemia
     Dosage: 64208-8235-1 - 5 GM/50 ML VIAL?40 GRAMS PER DAY EVERY 4 WEEKS?1 VIAL
     Route: 065
     Dates: start: 20240903, end: 20240904
  6. GAMMAPLEX [Suspect]
     Active Substance: HUMAN IMMUNOGLOBULIN G
     Indication: Hypogammaglobulinaemia
     Dosage: 64208-8235-1 - 5 GM/50 ML VIAL?40 GRAMS PER DAY EVERY 4 WEEKS?1 VIAL
     Route: 065
     Dates: start: 20240903, end: 20240904
  7. LEVOTHYROXINE SODIUM [Concomitant]
     Active Substance: LEVOTHYROXINE SODIUM
     Indication: Product used for unknown indication
     Dosage: 10- 100 MCG
     Route: 048
  8. LORATADINE [Concomitant]
     Active Substance: LORATADINE
     Indication: Product used for unknown indication
     Route: 048
  9. POTASSIUM CHLORIDE [Concomitant]
     Active Substance: POTASSIUM CHLORIDE
     Indication: Product used for unknown indication
     Route: 048
  10. Pseudoephedrine HCI [Concomitant]
     Indication: Nasal congestion
     Dosage: 30 MG ORAL EVERY 6 HOURS AS NEEDED
     Route: 048
  11. TAMSULOSIN HYDROCHLORIDE [Concomitant]
     Active Substance: TAMSULOSIN HYDROCHLORIDE
     Indication: Product used for unknown indication
     Dosage: TAKE 2 TABLETS PO DAILY
     Route: 048
  12. Venclexeta [Concomitant]
     Indication: Product used for unknown indication
     Dosage: TABLET 100 MG
     Route: 048
  13. DARZALEX [Concomitant]
     Active Substance: DARATUMUMAB
     Indication: Product used for unknown indication
     Dosage: 100MG/5 ML
     Route: 042

REACTIONS (5)
  - Hyperhidrosis [Recovered/Resolved]
  - Chest pain [Recovered/Resolved]
  - Blood pressure increased [Recovered/Resolved]
  - Heart rate increased [Recovered/Resolved]
  - Off label use [Unknown]

NARRATIVE: CASE EVENT DATE: 20240131
